FAERS Safety Report 18755822 (Version 1)
Quarter: 2021Q1

REPORT INFORMATION
  Report Type: Spontaneous
  Country: US (occurrence: US)
  Receive Date: 20210119
  Receipt Date: 20210119
  Transmission Date: 20210419
  Serious: Yes (Other)
  Sender: FDA-Public Use
  Company Number: US-BAYER-2020-233046

PATIENT
  Age: 66 Year
  Sex: Female
  Weight: 58.97 kg

DRUGS (7)
  1. BAYER ASPIRIN [Suspect]
     Active Substance: ASPIRIN
     Indication: PAIN
     Dosage: 3 DF, QID
     Route: 048
  2. PRISTIQ EXTENDED?RELEASE [Concomitant]
     Active Substance: DESVENLAFAXINE SUCCINATE
     Indication: ANXIETY
     Dosage: UNK
     Route: 048
     Dates: start: 2020
  3. PRISTIQ EXTENDED?RELEASE [Concomitant]
     Active Substance: DESVENLAFAXINE SUCCINATE
     Indication: MAJOR DEPRESSION
  4. PREDNISONE. [Concomitant]
     Active Substance: PREDNISONE
     Dosage: 1 DF, QD
  5. TYLENOL [Concomitant]
     Active Substance: ACETAMINOPHEN
     Indication: PAIN
     Dosage: 2 DF
     Route: 048
  6. OXYCODONE [Concomitant]
     Active Substance: OXYCODONE
     Indication: PAIN
     Dosage: 0.5 MG, PRN
  7. PREDNISONE. [Concomitant]
     Active Substance: PREDNISONE
     Dosage: 10 MG, QID
     Dates: start: 20201001

REACTIONS (3)
  - Feeling abnormal [Recovering/Resolving]
  - Drug ineffective [None]
  - Pneumonia [Recovering/Resolving]

NARRATIVE: CASE EVENT DATE: 202010
